FAERS Safety Report 6369807-8 (Version None)
Quarter: 2009Q3

REPORT INFORMATION
  Report Type: 
  Country: None (occurrence: None)
  Receive Date: 20090923
  Receipt Date: 20090921
  Transmission Date: 20100115
  Serious: Yes (Hospitalization)
  Sender: FDA-Public Use
  Company Number: FR-BRISTOL-MYERS SQUIBB COMPANY-14589931

PATIENT
  Age: 25 Year
  Sex: Male

DRUGS (3)
  1. REYATAZ [Suspect]
     Indication: ANTIRETROVIRAL THERAPY
     Dates: start: 20090214
  2. NORVIR [Interacting]
     Indication: ANTIRETROVIRAL THERAPY
     Dosage: INTERRUPTED ON 2APR09,RESTARTED ON 15SEP09
     Dates: start: 20090214
  3. ENTOCORT EC [Interacting]
     Indication: CROHN'S DISEASE
     Dates: start: 20081027, end: 20090915

REACTIONS (2)
  - CUSHING'S SYNDROME [None]
  - DRUG INTERACTION [None]
